FAERS Safety Report 7268129-0 (Version None)
Quarter: 2011Q1

REPORT INFORMATION
  Report Type: 
  Country: None (occurrence: None)
  Receive Date: 20110201
  Receipt Date: 20110126
  Transmission Date: 20110831
  Serious: No
  Sender: FDA-Public Use
  Company Number: US-PFIZER INC-2010167446

PATIENT
  Sex: Male
  Weight: 113.38 kg

DRUGS (9)
  1. SPIRONOLACTONE [Concomitant]
     Indication: CARDIAC DISORDER
     Dosage: UNK
  2. VIAGRA [Suspect]
     Dosage: UNK, AS NEEDED
     Route: 048
     Dates: start: 20090101
  3. COREG [Concomitant]
     Indication: CARDIAC DISORDER
     Dosage: UNK
  4. LISINOPRIL [Concomitant]
     Indication: CARDIAC DISORDER
     Dosage: UNK
  5. ASCORBIC ACID [Concomitant]
     Indication: CARDIAC DISORDER
     Dosage: UNK
  6. CARBASALATE CALCIUM [Concomitant]
     Indication: GASTRIC ULCER
  7. LASIX [Concomitant]
     Indication: HYPERTENSION
     Dosage: UNK
  8. VIAGRA [Suspect]
     Indication: ERECTILE DYSFUNCTION
     Dosage: 50 MG, AS NEEDED
     Route: 048
     Dates: start: 20080101
  9. NEXIUM [Concomitant]
     Indication: DYSPEPSIA
     Dosage: UNK

REACTIONS (2)
  - VITAMIN D DECREASED [None]
  - DRUG INEFFECTIVE [None]
